FAERS Safety Report 23717162 (Version 2)
Quarter: 2024Q2

REPORT INFORMATION
  Report Type: Spontaneous
  Country: US (occurrence: US)
  Receive Date: 20240408
  Receipt Date: 20240429
  Transmission Date: 20240716
  Serious: Yes (Hospitalization)
  Sender: FDA-Public Use
  Company Number: US-GRAVITIPHARMA-GRA-2403-US-LIT-0065

PATIENT

DRUGS (13)
  1. BACLOFEN [Suspect]
     Active Substance: BACLOFEN
     Indication: Abdominal rigidity
  2. TIZANIDINE [Suspect]
     Active Substance: TIZANIDINE
     Indication: Abdominal rigidity
  3. DANTROLENE [Suspect]
     Active Substance: DANTROLENE
     Indication: Abdominal rigidity
  4. DIAZEPAM [Suspect]
     Active Substance: DIAZEPAM
     Indication: Abdominal rigidity
  5. DIAMORPHINE [Concomitant]
     Active Substance: DIAMORPHINE
     Route: 015
  6. HYDROCODONE [Concomitant]
     Active Substance: HYDROCODONE
     Indication: Drug use disorder
  7. METHADONE [Concomitant]
     Active Substance: METHADONE HYDROCHLORIDE
     Indication: Drug use disorder
  8. BUPRENORPHINE\NALOXONE [Concomitant]
     Active Substance: BUPRENORPHINE\NALOXONE
     Indication: Product used for unknown indication
     Dosage: 8 MG/2 MG
  9. CLONIDINE [Concomitant]
     Active Substance: CLONIDINE
  10. ONDANSETRON [Concomitant]
     Active Substance: ONDANSETRON
     Indication: Nausea
  11. BOTULINUM TOXIN TYPE A [Concomitant]
     Active Substance: BOTULINUM TOXIN TYPE A
  12. MIDAZOLAM [Concomitant]
     Active Substance: MIDAZOLAM
     Indication: Pain
  13. HEROIN [Concomitant]
     Active Substance: DIAMORPHINE
     Indication: Pain
     Route: 042

REACTIONS (1)
  - Drug ineffective [Unknown]
